FAERS Safety Report 9938564 (Version 1)
Quarter: 2014Q1

REPORT INFORMATION
  Report Type: Spontaneous
  Country: FR (occurrence: FR)
  Receive Date: 20140303
  Receipt Date: 20140303
  Transmission Date: 20141002
  Serious: Yes (Death, Other)
  Sender: FDA-Public Use
  Company Number: FR-009507513-1402FRA012397

PATIENT
  Age: 86 Year
  Sex: Female

DRUGS (4)
  1. PROGLICEM [Suspect]
     Dosage: 75 MG, QD
     Route: 048
     Dates: start: 20131208, end: 201312
  2. PROGLICEM [Suspect]
     Dosage: 300 MG, QD
     Route: 048
     Dates: start: 20131213, end: 20131227
  3. INIPOMP [Suspect]
     Dosage: 40 MG, QD
     Route: 048
     Dates: start: 20131209, end: 20131227
  4. SERESTA [Concomitant]
     Dosage: 10 MG, UNK
     Route: 048
     Dates: start: 20131128, end: 20131216

REACTIONS (1)
  - Renal failure acute [Fatal]
